FAERS Safety Report 21460956 (Version 1)
Quarter: 2022Q4

REPORT INFORMATION
  Report Type: Report from Study
  Country: US (occurrence: US)
  Receive Date: 20221015
  Receipt Date: 20221015
  Transmission Date: 20230113
  Serious: No
  Sender: FDA-Public Use
  Company Number: US-ABBVIE-4145955

PATIENT
  Sex: Male

DRUGS (1)
  1. VENCLEXTA [Suspect]
     Active Substance: VENETOCLAX
     Indication: Acute myelomonocytic leukaemia
     Dosage: FORM STRENGTH: 100 MILLIGRAM, FREQUENCY TEXT: 4 TABLETS ONCE DAILY FOR 21 DAYS
     Route: 048

REACTIONS (1)
  - Hypophagia [Not Recovered/Not Resolved]
